FAERS Safety Report 6534162-7 (Version None)
Quarter: 2010Q1

REPORT INFORMATION
  Report Type: 
  Country: None (occurrence: None)
  Receive Date: 20100112
  Receipt Date: 20100107
  Transmission Date: 20100710
  Serious: Yes (Death)
  Sender: FDA-Public Use
  Company Number: US-SANOFI-AVENTIS-2010SA001083

PATIENT
  Age: 69 Year
  Sex: Male
  Weight: 87.6 kg

DRUGS (5)
  1. DOCETAXEL [Suspect]
     Indication: PROSTATE CANCER
     Route: 042
     Dates: start: 20090828, end: 20090828
  2. DOCETAXEL [Suspect]
     Route: 042
     Dates: start: 20090122, end: 20090122
  3. BLINDED THERAPY [Suspect]
     Indication: PROSTATE CANCER
     Route: 048
     Dates: start: 20090122, end: 20090908
  4. PREDNISONE [Suspect]
     Indication: PROSTATE CANCER
     Route: 048
     Dates: start: 20090122, end: 20090908
  5. DEXAMETHASONE [Suspect]
     Indication: PREMEDICATION
     Dates: start: 20090122, end: 20090828

REACTIONS (1)
  - DEATH [None]
